FAERS Safety Report 6432032-6 (Version None)
Quarter: 2009Q4

REPORT INFORMATION
  Report Type: 
  Country: None (occurrence: None)
  Receive Date: 20091109
  Receipt Date: 20091022
  Transmission Date: 20100525
  Serious: No
  Sender: FDA-Public Use
  Company Number: US-BAYER-200935983NA

PATIENT
  Age: 51 Year
  Sex: Male

DRUGS (10)
  1. LEVITRA [Suspect]
     Indication: ERECTILE DYSFUNCTION
     Dosage: TOTAL DAILY DOSE: 20 MG  UNIT DOSE: 20 MG
     Route: 048
     Dates: start: 20090925, end: 20091002
  2. LEVITRA [Suspect]
     Dosage: UNIT DOSE: 20 MG
     Dates: start: 20090929
  3. METOPROLOL [Concomitant]
  4. FUROSEMIDE [Concomitant]
  5. ALLOPURINOL [Concomitant]
  6. ASPIRIN [Concomitant]
  7. FOLIC ACID [Concomitant]
  8. LISINOPRIL [Concomitant]
  9. PRAVASTATIN [Concomitant]
  10. CIMETIDINE [Concomitant]

REACTIONS (1)
  - ERECTILE DYSFUNCTION [None]
